FAERS Safety Report 9916340 (Version 3)
Quarter: 2014Q1

REPORT INFORMATION
  Report Type: Spontaneous
  Country: US (occurrence: US)
  Receive Date: 20140221
  Receipt Date: 20140305
  Transmission Date: 20141002
  Serious: Yes (Hospitalization, Disabling, Other)
  Sender: FDA-Public Use
  Company Number: US-009507513-1203USA02914

PATIENT
  Sex: Female

DRUGS (5)
  1. FOSAMAX [Suspect]
     Indication: OSTEOPOROSIS
     Dosage: UNK
     Route: 048
     Dates: start: 1999
  2. FOSAMAX [Suspect]
     Route: 048
  3. VICODIN [Concomitant]
     Dosage: UNK
     Dates: start: 1998
  4. IBUPROFEN [Concomitant]
     Dosage: UNK
     Dates: start: 1999
  5. BACLOFEN [Concomitant]
     Dosage: UNK
     Dates: start: 1999

REACTIONS (14)
  - Femur fracture [Unknown]
  - Internal fixation of fracture [Unknown]
  - Bone disorder [Not Recovered/Not Resolved]
  - Intramedullary rod insertion [Unknown]
  - Rheumatoid arthritis [Unknown]
  - Tooth injury [Unknown]
  - Injury [Unknown]
  - Bone disorder [Unknown]
  - Limb asymmetry [Unknown]
  - Osteoarthritis [Unknown]
  - Osteotomy [Unknown]
  - Impaired healing [Unknown]
  - Fall [Unknown]
  - Pain in extremity [Unknown]
